FAERS Safety Report 5671881-9 (Version None)
Quarter: 2008Q1

REPORT INFORMATION
  Report Type: 
  Country: None (occurrence: None)
  Receive Date: 20080317
  Receipt Date: 20080317
  Transmission Date: 20080703
  Serious: Yes (Other)
  Sender: FDA-Public Use
  Company Number: None

PATIENT
  Age: 37 Year
  Sex: Male
  Weight: 81.6475 kg

DRUGS (1)
  1. LEVAQUIN [Suspect]
     Indication: INFECTION
     Dosage: 500 MG 1 PILL DAILY PO
     Route: 048
     Dates: start: 20080218, end: 20080227

REACTIONS (2)
  - MYALGIA [None]
  - TENDON PAIN [None]
